FAERS Safety Report 7126355-5 (Version None)
Quarter: 2010Q4

REPORT INFORMATION
  Report Type: 
  Country: None (occurrence: None)
  Receive Date: 20101129
  Receipt Date: 20101118
  Transmission Date: 20110411
  Serious: Yes (Other)
  Sender: FDA-Public Use
  Company Number: DE-CEPHALON-2010004012

PATIENT
  Sex: Female

DRUGS (3)
  1. TREANDA [Suspect]
     Route: 042
     Dates: start: 20100609, end: 20101005
  2. RITUXIMAB [Suspect]
  3. ALLOPURINOL [Suspect]
     Dates: start: 20100602, end: 20100702

REACTIONS (3)
  - BLISTER [None]
  - ERYTHEMA [None]
  - OEDEMA PERIPHERAL [None]
